FAERS Safety Report 18247278 (Version 1)
Quarter: 2020Q3

REPORT INFORMATION
  Report Type: Spontaneous
  Country: CA (occurrence: CA)
  Receive Date: 20200909
  Receipt Date: 20200909
  Transmission Date: 20201103
  Serious: Yes (Hospitalization)
  Sender: FDA-Public Use
  Company Number: CA-009507513-2009CAN002825

PATIENT
  Age: 67 Year
  Sex: Male

DRUGS (1)
  1. ONCOTICE [Suspect]
     Active Substance: BACILLUS CALMETTE-GUERIN SUBSTRAIN TICE LIVE ANTIGEN
     Indication: BLADDER CANCER
     Dosage: DOSAGE FORM: POWDER FOR SOLUTION SUBCUTANEOUS, 1 EVERY 1 WEEKS
     Route: 065

REACTIONS (4)
  - Aortic bypass [Unknown]
  - Mycobacterium tuberculosis complex test positive [Unknown]
  - Aortic aneurysm repair [Unknown]
  - Disseminated Bacillus Calmette-Guerin infection [Unknown]
